FAERS Safety Report 9504046 (Version 1)
Quarter: 2013Q3

REPORT INFORMATION
  Report Type: Spontaneous
  Country: US (occurrence: None)
  Receive Date: 20130905
  Receipt Date: 20130905
  Transmission Date: 20140515
  Serious: Yes (Death)
  Sender: FDA-Public Use
  Company Number: None

PATIENT
  Age: 58 Year
  Sex: Female

DRUGS (1)
  1. TEMODAR [Suspect]
     Indication: BRAIN NEOPLASM
     Dosage: 200 MG  ONCE DAILY FOR 5 DAYS  BY MOUTH
     Route: 048
     Dates: start: 20130711, end: 20130818

REACTIONS (1)
  - Death [None]
